FAERS Safety Report 25600356 (Version 3)
Quarter: 2025Q3

REPORT INFORMATION
  Report Type: Report from Study
  Country: US (occurrence: US)
  Receive Date: 20250724
  Receipt Date: 20250911
  Transmission Date: 20251020
  Serious: Yes (Hospitalization, Other)
  Sender: SUNOVION
  Company Number: US-SMPA-2025SPA008863AA

PATIENT
  Age: 89 Year
  Sex: Male

DRUGS (2)
  1. ORGOVYX [Suspect]
     Active Substance: RELUGOLIX
     Indication: Prostate cancer
     Route: 048
  2. ORGOVYX [Suspect]
     Active Substance: RELUGOLIX
     Route: 048

REACTIONS (12)
  - Ureteral stent insertion [Unknown]
  - Nephrolithiasis [Unknown]
  - Hip arthroplasty [Unknown]
  - Feeling abnormal [Recovered/Resolved]
  - Aortic aneurysm [Unknown]
  - Hypersomnia [Recovered/Resolved]
  - Swelling [Unknown]
  - Bursitis [Unknown]
  - Feeling jittery [Recovered/Resolved]
  - Anxiety [Recovered/Resolved]
  - Blood pressure increased [Unknown]
  - Abdominal pain lower [Unknown]
